FAERS Safety Report 6815148-1 (Version None)
Quarter: 2010Q3

REPORT INFORMATION
  Report Type: 
  Country: None (occurrence: None)
  Receive Date: 20100702
  Receipt Date: 20100701
  Transmission Date: 20110219
  Serious: Yes (Life-Threatening, Hospitalization)
  Sender: FDA-Public Use
  Company Number: PHHO2010DE06317

PATIENT
  Sex: Female
  Weight: 60 kg

DRUGS (3)
  1. CERTICAN [Suspect]
     Indication: LIVER TRANSPLANT
     Dosage: UNK
     Route: 048
  2. TACROLIMUS [Suspect]
     Indication: LIVER TRANSPLANT
     Dosage: 6 MG
     Route: 048
     Dates: start: 20100328
  3. CELLCEPT [Suspect]
     Indication: LIVER TRANSPLANT
     Dosage: 2000 MG
     Route: 048
     Dates: start: 20100328

REACTIONS (1)
  - COMPLICATIONS OF TRANSPLANTED LIVER [None]
